FAERS Safety Report 6643598-5 (Version None)
Quarter: 2010Q1

REPORT INFORMATION
  Report Type: 
  Country: None (occurrence: None)
  Receive Date: 20100320
  Receipt Date: 20100310
  Transmission Date: 20100710
  Serious: Yes (Other)
  Sender: FDA-Public Use
  Company Number: US-JNJFOC-20060906226

PATIENT
  Sex: Female

DRUGS (1)
  1. RISPERDAL [Suspect]
     Indication: DEPRESSION
     Route: 065

REACTIONS (4)
  - BLOOD PROLACTIN INCREASED [None]
  - OBESITY [None]
  - SOMNOLENCE [None]
  - TYPE 1 DIABETES MELLITUS [None]
